FAERS Safety Report 8971337 (Version 4)
Quarter: 2013Q1

REPORT INFORMATION
  Report Type: Spontaneous
  Country: AU (occurrence: AU)
  Receive Date: 20121218
  Receipt Date: 20130118
  Transmission Date: 20140127
  Serious: Yes (Other)
  Sender: FDA-Public Use
  Company Number: AU-JNJFOC-20121205254

PATIENT
  Sex: Male
  Weight: 66 kg

DRUGS (1)
  1. REMICADE [Suspect]
     Indication: ANKYLOSING SPONDYLITIS
     Dosage: TOTAL NUMBER OF INFUSIONS RECEIVED -12 TOTAL DOSE 300MG
     Route: 042
     Dates: start: 2010

REACTIONS (2)
  - Neurodermatitis [Not Recovered/Not Resolved]
  - Rash [Not Recovered/Not Resolved]
